FAERS Safety Report 5788316-8 (Version None)
Quarter: 2008Q2

REPORT INFORMATION
  Report Type: 
  Country: None (occurrence: None)
  Receive Date: 20080623
  Receipt Date: 20080615
  Transmission Date: 20081010
  Serious: Yes (Death)
  Sender: FDA-Public Use
  Company Number: CHPA2008US10089

PATIENT
  Sex: Male

DRUGS (1)
  1. WALGREEN'S           (NICOTINE) TRANS-THERAPEUTIC-SYSTEM [Suspect]
     Indication: SMOKING CESSATION THERAPY
     Dosage: 21 MG, TRANSDERMAL
     Route: 062

REACTIONS (1)
  - LUNG NEOPLASM MALIGNANT [None]
